FAERS Safety Report 6160171-6 (Version None)
Quarter: 2009Q2

REPORT INFORMATION
  Report Type: 
  Country: None (occurrence: None)
  Receive Date: 20090420
  Receipt Date: 20090410
  Transmission Date: 20091009
  Serious: Yes (Hospitalization)
  Sender: FDA-Public Use
  Company Number: A0779247A

PATIENT
  Sex: Male

DRUGS (12)
  1. AVANDIA [Suspect]
     Indication: DIABETES MELLITUS
     Dosage: 8MG PER DAY
     Route: 048
     Dates: start: 19990101, end: 20070501
  2. GLUCOTROL XL [Concomitant]
  3. COREG [Concomitant]
  4. PROPRANOLOL [Concomitant]
  5. LESCOL [Concomitant]
  6. VYTORIN [Concomitant]
  7. TRICOR [Concomitant]
  8. MIRTAZAPINE [Concomitant]
  9. QUINAPRIL [Concomitant]
  10. CILOSTAZOL [Concomitant]
  11. TRAMADOL HCL [Concomitant]
  12. APAP TAB [Concomitant]

REACTIONS (2)
  - CARDIAC FAILURE CONGESTIVE [None]
  - CAROTID ARTERY DISEASE [None]
